FAERS Safety Report 13031714 (Version 1)
Quarter: 2016Q4

REPORT INFORMATION
  Report Type: Spontaneous
  Country: FR (occurrence: FR)
  Receive Date: 20161215
  Receipt Date: 20161215
  Transmission Date: 20170207
  Serious: Yes (Death, Other)
  Sender: FDA-Public Use
  Company Number: FR-BAYER-2016-234071

PATIENT
  Age: 68 Year
  Sex: Female

DRUGS (3)
  1. CIPROFLOXACIN. [Suspect]
     Active Substance: CIPROFLOXACIN
  2. IMIPENEM [Concomitant]
     Active Substance: IMIPENEM
  3. AMIKACIN [Concomitant]
     Active Substance: AMIKACIN

REACTIONS (4)
  - Generalised tonic-clonic seizure [None]
  - Death [Fatal]
  - Hemiparesis [None]
  - Drug ineffective [None]
